FAERS Safety Report 6286695-9 (Version None)
Quarter: 2009Q3

REPORT INFORMATION
  Report Type: 
  Country: None (occurrence: None)
  Receive Date: 20090727
  Receipt Date: 20090727
  Transmission Date: 20100115
  Serious: No
  Sender: FDA-Public Use
  Company Number: None

PATIENT
  Age: 79 Year
  Sex: Female
  Weight: 65.7716 kg

DRUGS (2)
  1. ZICAM NASAL GEL (HOMEOPATHIC) ZINCUM GLUCONICUM 2X [Suspect]
     Indication: NASOPHARYNGITIS
     Dosage: 1 OR 2 SPRAYS AND RUB IN NASAL PASSAGE 2 OR 3 TIMES DAY
     Dates: start: 20050101, end: 20051001
  2. ZICAM NASAL GEL (HOMEOPATHIC) ZINCUM GLUCONICUM 2X [Suspect]

REACTIONS (1)
  - ANOSMIA [None]
